FAERS Safety Report 8295159-2 (Version None)
Quarter: 2012Q2

REPORT INFORMATION
  Report Type: 
  Country: None (occurrence: None)
  Receive Date: 20120418
  Receipt Date: 20120413
  Transmission Date: 20120825
  Serious: Yes (Hospitalization)
  Sender: FDA-Public Use
  Company Number: BR-PFIZER INC-2011176998

PATIENT
  Age: 53 Year
  Sex: Male
  Weight: 84.8 kg

DRUGS (1)
  1. SUNITINIB MALATE [Suspect]
     Indication: METASTATIC RENAL CELL CARCINOMA
     Dosage: 50 MG DAILY, SCHEDULE 4/2
     Route: 048
     Dates: start: 20061219, end: 20110511

REACTIONS (1)
  - ANAL FISTULA [None]
